FAERS Safety Report 6127576-0 (Version None)
Quarter: 2009Q1

REPORT INFORMATION
  Report Type: 
  Country: None (occurrence: None)
  Receive Date: 20090323
  Receipt Date: 20090311
  Transmission Date: 20090719
  Serious: Yes (Hospitalization)
  Sender: FDA-Public Use
  Company Number: US-BIOGENIDEC-2008BI022483

PATIENT
  Age: 54 Year
  Sex: Female

DRUGS (3)
  1. TYSABRI [Suspect]
     Indication: MULTIPLE SCLEROSIS
     Route: 042
     Dates: start: 20070612
  2. TYSABRI [Suspect]
     Route: 042
     Dates: start: 20080206
  3. AVONEX [Concomitant]
     Indication: MULTIPLE SCLEROSIS
     Dates: start: 19980201

REACTIONS (2)
  - APPENDICEAL ABSCESS [None]
  - URINARY TRACT INFECTION [None]
